FAERS Safety Report 12116084 (Version 3)
Quarter: 2016Q2

REPORT INFORMATION
  Report Type: Report from Study
  Country: MX (occurrence: MX)
  Receive Date: 20160225
  Receipt Date: 20160617
  Transmission Date: 20160815
  Serious: Yes (Death, Other)
  Sender: FDA-Public Use
  Company Number: PHHY2016MX024675

PATIENT
  Sex: Female

DRUGS (9)
  1. GALVUS MET [Suspect]
     Active Substance: METFORMIN HYDROCHLORIDE\VILDAGLIPTIN
     Indication: PRODUCT USED FOR UNKNOWN INDICATION
     Route: 065
  2. CYMBALTA [Concomitant]
     Active Substance: DULOXETINE HYDROCHLORIDE
     Indication: PRODUCT USED FOR UNKNOWN INDICATION
     Dosage: 1 DF, (AT NIGHT, 5 YEARS AGO)
     Route: 048
  3. OMEPRAZOLE. [Concomitant]
     Active Substance: OMEPRAZOLE
     Indication: GASTRITIS
     Dosage: 1 DF, (IN THE MORNING AND AT NIGHT, 15 YEARS AGO)
     Route: 065
  4. GALVUS [Suspect]
     Active Substance: VILDAGLIPTIN
     Indication: DIABETES MELLITUS
     Dosage: 0.5 DF, (AT BREAKFAST AND AT DINNER)
     Route: 065
  5. ISOSORBIDE. [Concomitant]
     Active Substance: ISOSORBIDE
     Indication: CARDIAC DISORDER
     Dosage: 3 DF, QD
     Route: 065
     Dates: start: 2014
  6. AMARYL [Concomitant]
     Active Substance: GLIMEPIRIDE
     Indication: PRODUCT USED FOR UNKNOWN INDICATION
     Route: 065
  7. RITALINE [Suspect]
     Active Substance: METHYLPHENIDATE HYDROCHLORIDE
     Indication: SENILE DEMENTIA
     Dosage: 2 DF, QD
     Route: 065
  8. EBIXA [Concomitant]
     Active Substance: MEMANTINE HYDROCHLORIDE
     Indication: SENILE DEMENTIA
     Dosage: 0.5 DF, (AT BREAKFAST AND AT NIGHT, 3 YEARS AGO)
     Route: 048
  9. INSULIN [Concomitant]
     Active Substance: INSULIN NOS
     Indication: PRODUCT USED FOR UNKNOWN INDICATION
     Dosage: (10 OR 11 YEARS BEFORE HER DEATH, USED ONLY FOR 2 MONTHS)
     Route: 065

REACTIONS (4)
  - Cardiac arrest [Fatal]
  - Blood glucose decreased [Unknown]
  - Product use issue [Not Recovered/Not Resolved]
  - Blood glucose increased [Unknown]
